FAERS Safety Report 9449016 (Version 1)
Quarter: 2013Q3

REPORT INFORMATION
  Report Type: Spontaneous
  Country: JP (occurrence: JP)
  Receive Date: 20130808
  Receipt Date: 20130808
  Transmission Date: 20140515
  Serious: Yes (Other)
  Sender: FDA-Public Use
  Company Number: PHHY2013JP084953

PATIENT
  Age: 77 Year
  Sex: Male

DRUGS (2)
  1. RIFAMPICIN SANDOZ [Suspect]
     Indication: TUBERCULOSIS
     Dosage: 150 MG, UNK
     Route: 048
     Dates: end: 20130616
  2. WARFARIN [Interacting]
     Route: 048

REACTIONS (2)
  - International normalised ratio increased [Recovered/Resolved]
  - Drug interaction [Recovered/Resolved]
